FAERS Safety Report 5796728-1 (Version None)
Quarter: 2008Q3

REPORT INFORMATION
  Report Type: 
  Country: None (occurrence: None)
  Receive Date: 20080701
  Receipt Date: 20080624
  Transmission Date: 20090109
  Serious: Yes (Life-Threatening, Hospitalization, Disabling)
  Sender: FDA-Public Use
  Company Number: DE-MERCK-0804DEU00052

PATIENT
  Age: 78 Year
  Sex: Male
  Weight: 97 kg

DRUGS (5)
  1. VYTORIN [Suspect]
     Indication: HYPERCHOLESTEROLAEMIA
     Route: 048
     Dates: start: 20080301, end: 20080407
  2. [THERAPY UNSPECIFIED] [Concomitant]
     Route: 065
  3. CYCLOSPORINE [Concomitant]
     Indication: IMMUNOSUPPRESSION
     Route: 065
     Dates: start: 19910101
  4. SIMVASTATIN [Suspect]
     Indication: HYPERCHOLESTEROLAEMIA
     Route: 048
     Dates: start: 20080301, end: 20080407
  5. SIMVASTATIN [Concomitant]
     Route: 048
     Dates: start: 19910101, end: 20080301

REACTIONS (5)
  - DIABETIC NEPHROPATHY [None]
  - RENAL FAILURE ACUTE [None]
  - RHABDOMYOLYSIS [None]
  - SUPRAVENTRICULAR TACHYCARDIA [None]
  - TYPE 2 DIABETES MELLITUS [None]
